FAERS Safety Report 23026720 (Version 1)
Quarter: 2023Q4

REPORT INFORMATION
  Report Type: Spontaneous
  Country: US (occurrence: US)
  Receive Date: 20231004
  Receipt Date: 20231004
  Transmission Date: 20240110
  Serious: No
  Sender: FDA-Public Use
  Company Number: US-ABBVIE-5434209

PATIENT
  Sex: Female

DRUGS (1)
  1. LASTACAFT [Suspect]
     Active Substance: ALCAFTADINE
     Indication: Conjunctivitis allergic
     Dosage: DROPS
     Route: 065

REACTIONS (1)
  - Somnolence [Unknown]
